FAERS Safety Report 4531194-5 (Version None)
Quarter: 2004Q4

REPORT INFORMATION
  Report Type: 
  Country: None (occurrence: None)
  Receive Date: 20041206
  Receipt Date: 20040901
  Transmission Date: 20050328
  Serious: No
  Sender: FDA-Public Use
  Company Number: USA040977050

PATIENT
  Age: 34 Year
  Sex: Female
  Weight: 54 kg

DRUGS (3)
  1. CYMBALTA [Suspect]
     Indication: SOMNOLENCE
     Dosage: 60 MG/1 DAY
     Dates: start: 20040831
  2. PROZAC [Suspect]
     Indication: DEPRESSION
  3. KLONOPIN [Concomitant]

REACTIONS (7)
  - ABNORMAL DREAMS [None]
  - DYSPEPSIA [None]
  - HEADACHE [None]
  - INSOMNIA [None]
  - NIGHTMARE [None]
  - RESTLESSNESS [None]
  - TREMOR [None]
